FAERS Safety Report 5654435-X (Version None)
Quarter: 2008Q1

REPORT INFORMATION
  Report Type: 
  Country: None (occurrence: None)
  Receive Date: 20080305
  Receipt Date: 20080213
  Transmission Date: 20080703
  Serious: Yes (Other)
  Sender: FDA-Public Use
  Company Number: 1-15730868

PATIENT
  Age: 74 Year
  Sex: Female
  Weight: 62.1428 kg

DRUGS (2)
  1. DISODIUM EDTA DIHYDRATE IN PLASTIC CONTAINER [Suspect]
     Indication: ARTERIAL DISORDER
     Dosage: INTRAVENOUS
     Route: 042
  2. UNSPECIFIED VITAMINS AND DIETARY SUPPLEMENTS [Concomitant]

REACTIONS (9)
  - BLOOD CALCIUM DECREASED [None]
  - BLOOD MAGNESIUM DECREASED [None]
  - BODY HEIGHT DECREASED [None]
  - BONE GRAFT [None]
  - GAIT DISTURBANCE [None]
  - OSTEOPENIA [None]
  - PAIN IN EXTREMITY [None]
  - SPINAL DISORDER [None]
  - TOOTH DISORDER [None]
